FAERS Safety Report 25465949 (Version 5)
Quarter: 2025Q4

REPORT INFORMATION
  Report Type: Spontaneous
  Country: US (occurrence: None)
  Receive Date: 20250623
  Receipt Date: 20251202
  Transmission Date: 20260117
  Serious: No
  Sender: APOTEX
  Company Number: US-APOTEX-2025AP008093

PATIENT
  Sex: Male

DRUGS (3)
  1. IPRATROPIUM BROMIDE [Suspect]
     Active Substance: IPRATROPIUM BROMIDE
     Indication: Product used for unknown indication
     Dosage: 4 DOSAGE FORM, Q.AM
     Dates: end: 20250528
  2. IPRATROPIUM BROMIDE [Suspect]
     Active Substance: IPRATROPIUM BROMIDE
     Dosage: 4 DOSAGE FORM, Q.AM
     Dates: start: 20250603
  3. IPRATROPIUM BROMIDE [Suspect]
     Active Substance: IPRATROPIUM BROMIDE
     Dosage: 4 DOSAGE FORM, QD
     Dates: start: 2025

REACTIONS (4)
  - Product dose omission issue [Unknown]
  - Product delivery mechanism issue [Unknown]
  - Product packaging quantity issue [Unknown]
  - Product use issue [Unknown]

NARRATIVE: CASE EVENT DATE: 20250101
